FAERS Safety Report 13674623 (Version 1)
Quarter: 2017Q2

REPORT INFORMATION
  Report Type: Spontaneous
  Country: US (occurrence: US)
  Receive Date: 20170621
  Receipt Date: 20170621
  Transmission Date: 20170830
  Serious: No
  Sender: FDA-Public Use
  Company Number: US-ALLERGAN-1716155US

PATIENT
  Sex: Female

DRUGS (1)
  1. LOESTRIN FE 1/20 [Suspect]
     Active Substance: ETHINYL ESTRADIOL\NORETHINDRONE ACETATE
     Indication: CONTRACEPTION
     Dosage: UNK UNK, UNKNOWN
     Route: 065

REACTIONS (3)
  - Oligomenorrhoea [Unknown]
  - Expired product administered [Unknown]
  - Abdominal pain [Unknown]
